FAERS Safety Report 7332207-8 (Version None)
Quarter: 2011Q1

REPORT INFORMATION
  Report Type: 
  Country: None (occurrence: None)
  Receive Date: 20110228
  Receipt Date: 20110228
  Transmission Date: 20110831
  Serious: Yes (Hospitalization)
  Sender: FDA-Public Use
  Company Number: None

PATIENT
  Sex: Female
  Weight: 72.5755 kg

DRUGS (1)
  1. SALSALATE [Suspect]
     Indication: RHEUMATOID ARTHRITIS
     Dosage: 750MG X 2WKS THEN BID PO   INCREASED TO 1500MG MG BID  2XD WK  OCT-11 X 2-3 WKS
     Route: 048

REACTIONS (2)
  - BLOOD PRESSURE INCREASED [None]
  - CONFUSIONAL STATE [None]
